FAERS Safety Report 6206472-4 (Version None)
Quarter: 2009Q2

REPORT INFORMATION
  Report Type: 
  Country: None (occurrence: None)
  Receive Date: 20090528
  Receipt Date: 20090520
  Transmission Date: 20091009
  Serious: Yes (Other)
  Sender: FDA-Public Use
  Company Number: US-AMGEN-US348134

PATIENT
  Sex: Female
  Weight: 2.79 kg

DRUGS (7)
  1. EPOGEN [Suspect]
     Indication: ANAEMIA
     Route: 064
  2. ALLOPURINOL [Concomitant]
     Route: 064
  3. PROBENECID [Concomitant]
     Route: 064
  4. IRON [Concomitant]
     Route: 064
  5. SODIUM [Concomitant]
  6. POTASSIUM CHLORIDE [Concomitant]
  7. MAGNESIUM SULFATE [Concomitant]

REACTIONS (1)
  - FOETAL HEART RATE DECELERATION [None]
